FAERS Safety Report 13256026 (Version 2)
Quarter: 2017Q1

REPORT INFORMATION
  Report Type: Spontaneous
  Country: US (occurrence: US)
  Receive Date: 20170221
  Receipt Date: 20170222
  Transmission Date: 20170428
  Serious: Yes (Hospitalization)
  Sender: FDA-Public Use
  Company Number: US-PFIZER INC-2016514786

PATIENT
  Age: 72 Year
  Sex: Male
  Weight: 83 kg

DRUGS (31)
  1. VFEND [Suspect]
     Active Substance: VORICONAZOLE
     Indication: FUSARIUM INFECTION
     Dosage: 200 MG, 2X/DAY
     Route: 048
     Dates: start: 20161027, end: 20170210
  2. PROGRAF [Concomitant]
     Active Substance: TACROLIMUS\TACROLIMUS ANHYDROUS
     Indication: IMMUNOSUPPRESSION
     Dosage: 0.5 MG, 2X/DAY
     Route: 048
  3. PRAVACHOL [Concomitant]
     Active Substance: PRAVASTATIN SODIUM
     Indication: BLOOD CHOLESTEROL
     Dosage: 80 MG, 1X/DAY (AT BEDTIME)
     Route: 048
     Dates: start: 201508
  4. LOPRESSOR [Concomitant]
     Active Substance: METOPROLOL TARTRATE
     Indication: BLOOD PRESSURE MEASUREMENT
     Dosage: 25 MG, 2X/DAY
     Route: 048
     Dates: start: 2014
  5. ZITHROMAX [Concomitant]
     Active Substance: AZITHROMYCIN DIHYDRATE
     Indication: ANTIBIOTIC THERAPY
     Dosage: 250 MG, UNK (MONDAY, WEDNESDAY AND FRIDAY)
     Route: 048
     Dates: start: 2015
  6. VFEND [Suspect]
     Active Substance: VORICONAZOLE
     Indication: PROPHYLAXIS
  7. ZITHROMAX [Concomitant]
     Active Substance: AZITHROMYCIN DIHYDRATE
     Indication: TRANSPLANT REJECTION
  8. LOPRESSOR [Concomitant]
     Active Substance: METOPROLOL TARTRATE
     Indication: HEART RATE
  9. VALCYTE [Concomitant]
     Active Substance: VALGANCICLOVIR HYDROCHLORIDE
     Indication: CYTOMEGALOVIRUS INFECTION
     Dosage: 450 MG, 1X/DAY
     Route: 048
     Dates: start: 201508
  10. VALCYTE [Concomitant]
     Active Substance: VALGANCICLOVIR HYDROCHLORIDE
     Dosage: UNK
  11. CELLCEPT [Concomitant]
     Active Substance: MYCOPHENOLATE MOFETIL\MYCOPHENOLATE MOFETIL HYDROCHLORIDE
     Indication: IMMUNOSUPPRESSION
     Dosage: 1000 MG, 2X/DAY
     Route: 048
     Dates: start: 201508
  12. PROGRAF [Concomitant]
     Active Substance: TACROLIMUS\TACROLIMUS ANHYDROUS
     Dosage: UNK
  13. CITRACAL PLUS D [Concomitant]
     Indication: MINERAL SUPPLEMENTATION
     Dosage: 315 MG, 2X/DAY
     Route: 048
  14. FLONASE [Concomitant]
     Active Substance: FLUTICASONE PROPIONATE
     Indication: HYPERSENSITIVITY
  15. BENADRYL [Concomitant]
     Active Substance: DIPHENHYDRAMINE HYDROCHLORIDE
     Indication: SLEEP DISORDER
     Dosage: 25 MG, AS NEEDED (AT BEDTIME)
     Route: 048
  16. VALCYTE [Concomitant]
     Active Substance: VALGANCICLOVIR HYDROCHLORIDE
     Dosage: 450 MG, 1X/DAY
     Route: 048
     Dates: start: 201604
  17. VFEND [Suspect]
     Active Substance: VORICONAZOLE
     Indication: ANTIFUNGAL TREATMENT
  18. PREDNISONE. [Concomitant]
     Active Substance: PREDNISONE
     Indication: IMMUNOSUPPRESSION
     Dosage: 5 MG, DAILY
     Route: 048
     Dates: start: 2015
  19. SEPTRA [Concomitant]
     Active Substance: SULFAMETHOXAZOLE\TRIMETHOPRIM
     Indication: ANTIBIOTIC THERAPY
     Dosage: 1 DF, DAILY [SULFAMETHOXAZOLE 400 MG]/[TRIMETHOPRIM 80 MG]
     Route: 048
     Dates: start: 201508
  20. NEURONTIN [Concomitant]
     Active Substance: GABAPENTIN
     Dosage: 3 DF, DAILY
     Route: 048
  21. MAG-OX [Concomitant]
     Active Substance: MAGNESIUM OXIDE
     Indication: MINERAL SUPPLEMENTATION
     Dosage: 400 MG, 2X/DAY
     Route: 048
  22. PROGRAF [Concomitant]
     Active Substance: TACROLIMUS\TACROLIMUS ANHYDROUS
     Dosage: 0.5 MG, 1X/DAY
     Route: 048
     Dates: start: 201508
  23. PROTONIX [Concomitant]
     Active Substance: PANTOPRAZOLE SODIUM
     Indication: GASTROOESOPHAGEAL REFLUX DISEASE
     Dosage: 40 MG, 2X/DAY
     Route: 048
     Dates: start: 201508
  24. LOPRESSOR [Concomitant]
     Active Substance: METOPROLOL TARTRATE
     Indication: IDIOPATHIC PULMONARY FIBROSIS
  25. CITRACAL PLUS D [Concomitant]
     Dosage: UNK (4 BIG CAPLETS A DAY, TWO CAPLETS IN THE MORNING AND AT NIGHT)
     Route: 048
     Dates: start: 201508
  26. FOSAMAX [Concomitant]
     Active Substance: ALENDRONATE SODIUM
     Indication: OSTEOPOROSIS
     Dosage: 70 MG, WEEKLY
     Route: 048
     Dates: start: 201508
  27. FLONASE [Concomitant]
     Active Substance: FLUTICASONE PROPIONATE
     Indication: COUGH
     Dosage: 50 UG, 2X/DAY (EACH NOSTRIL)
     Route: 045
     Dates: start: 2016
  28. MAGNESIUM SULFATE ANHYDROUS [Concomitant]
     Dosage: UNK
  29. NEURONTIN [Concomitant]
     Active Substance: GABAPENTIN
     Indication: NEURALGIA
     Dosage: 400 MG, 1X/DAY (AT BEDTIME)
     Route: 048
     Dates: start: 201508
  30. BABY ASPIRIN [Concomitant]
     Active Substance: ASPIRIN
     Indication: CEREBROVASCULAR ACCIDENT
     Dosage: 81 MG, DAILY
     Route: 048
     Dates: start: 2015
  31. SENOKOT-S [Concomitant]
     Active Substance: DOCUSATE SODIUM\SENNOSIDES
     Indication: CONSTIPATION
     Dosage: 2 DF, 2X/DAY
     Route: 048

REACTIONS (6)
  - Activities of daily living impaired [Unknown]
  - Feeling abnormal [Recovered/Resolved]
  - Asthenia [Recovered/Resolved]
  - Thrombosis [Recovered/Resolved]
  - Insomnia [Unknown]
  - Blood test abnormal [Unknown]

NARRATIVE: CASE EVENT DATE: 201701
